FAERS Safety Report 11912906 (Version 1)
Quarter: 2016Q1

REPORT INFORMATION
  Report Type: Report from Study
  Country: US (occurrence: US)
  Receive Date: 20160113
  Receipt Date: 20160113
  Transmission Date: 20160526
  Serious: Yes (Congenital Anomaly)
  Sender: FDA-Public Use
  Company Number: US-BRISTOL-MYERS SQUIBB COMPANY-10771459

PATIENT
  Age: 0 Year
  Sex: Female
  Weight: 3.31 kg

DRUGS (6)
  1. VIDEX [Suspect]
     Active Substance: DIDANOSINE
     Indication: PRODUCT USED FOR UNKNOWN INDICATION
     Dosage: 300 MG, QD
     Route: 064
     Dates: start: 1999, end: 20000929
  2. RETROVIR [Suspect]
     Active Substance: ZIDOVUDINE
     Dosage: 600 MG, QD
     Route: 064
     Dates: start: 20001104
  3. CRIXIVAN [Suspect]
     Active Substance: INDINAVIR SULFATE
     Indication: PRODUCT USED FOR UNKNOWN INDICATION
     Dosage: 1600 MG, QD
     Route: 064
     Dates: start: 1999, end: 20000929
  4. RETROVIR [Suspect]
     Active Substance: ZIDOVUDINE
     Indication: PRODUCT USED FOR UNKNOWN INDICATION
     Dosage: 400 MG, QD
     Route: 064
     Dates: start: 1999, end: 20000929
  5. STAVUDINE. [Suspect]
     Active Substance: STAVUDINE
     Indication: PRODUCT USED FOR UNKNOWN INDICATION
     Dosage: 80 MG, QD
     Route: 064
     Dates: start: 1999, end: 20000411
  6. HYDROXYUREA. [Suspect]
     Active Substance: HYDROXYUREA
     Indication: PRODUCT USED FOR UNKNOWN INDICATION
     Dosage: UNK
     Route: 064
     Dates: start: 1999, end: 20000215

REACTIONS (2)
  - Renal fusion anomaly [Unknown]
  - Foetal exposure during pregnancy [Recovered/Resolved]

NARRATIVE: CASE EVENT DATE: 20000912
